FAERS Safety Report 5329474-9 (Version None)
Quarter: 2007Q2

REPORT INFORMATION
  Report Type: 
  Country: None (occurrence: None)
  Receive Date: 20070221
  Receipt Date: 20060706
  Transmission Date: 20071010
  Serious: Yes (Other)
  Sender: FDA-Public Use
  Company Number: BDI-008366

PATIENT
  Age: 52 Year
  Sex: Male
  Weight: 68.18 kg

DRUGS (3)
  1. ISOVUE-370 [Suspect]
     Indication: CHEST X-RAY ABNORMAL
     Dosage: 100 ML ONCE IV
     Route: 042
     Dates: start: 20060508, end: 20060508
  2. ISOVUE-370 [Suspect]
     Indication: COMPUTERISED TOMOGRAM THORAX
     Dosage: 100 ML ONCE IV
     Route: 042
     Dates: start: 20060508, end: 20060508
  3. ISOVUE-370 [Suspect]
     Indication: WEIGHT DECREASED
     Dosage: 100 ML ONCE IV
     Route: 042
     Dates: start: 20060508, end: 20060508

REACTIONS (2)
  - ANAPHYLACTIC SHOCK [None]
  - CONVULSION [None]
